FAERS Safety Report 15742644 (Version 1)
Quarter: 2018Q4

REPORT INFORMATION
  Report Type: Spontaneous
  Country: PL (occurrence: PL)
  Receive Date: 20181219
  Receipt Date: 20181219
  Transmission Date: 20190205
  Serious: Yes (Death, Other)
  Sender: FDA-Public Use
  Company Number: PL-BAXTER-2018BAX009402

PATIENT
  Age: 26 Year
  Sex: Male

DRUGS (8)
  1. ENDOXAN [Suspect]
     Active Substance: CYCLOPHOSPHAMIDE
     Indication: EWING^S SARCOMA
     Dosage: VAC SCHEME LATER WITHDRAWN.
     Route: 065
  2. CEFTRIAXONE. [Concomitant]
     Active Substance: CEFTRIAXONE
     Indication: EVIDENCE BASED TREATMENT
     Route: 065
  3. CIPROFLOXACIN. [Concomitant]
     Active Substance: CIPROFLOXACIN
     Indication: EVIDENCE BASED TREATMENT
     Route: 065
  4. METRONIDAZOLE. [Concomitant]
     Active Substance: METRONIDAZOLE
     Indication: EVIDENCE BASED TREATMENT
     Route: 065
  5. CLINDAMYCIN. [Concomitant]
     Active Substance: CLINDAMYCIN
     Indication: EVIDENCE BASED TREATMENT
     Route: 065
  6. VINCRISTINE [Suspect]
     Active Substance: VINCRISTINE
     Indication: EWING^S SARCOMA
     Route: 065
  7. DOXORUBICIN [Suspect]
     Active Substance: DOXORUBICIN
     Indication: EWING^S SARCOMA
     Dosage: 40 MILLIGRAM DAILY; DUE TO BONE MARROW INFILTRATION DOXORUBICIN DOSE WAS REDUCED TO 40 MG
     Route: 065
  8. RIFAMPICIN [Concomitant]
     Active Substance: RIFAMPIN
     Indication: EVIDENCE BASED TREATMENT
     Route: 065

REACTIONS (13)
  - Urinary tract infection [Unknown]
  - Candida infection [Unknown]
  - Malignant neoplasm progression [Fatal]
  - Drug ineffective [Unknown]
  - Disease progression [Unknown]
  - Aspergillus infection [Unknown]
  - Thrombocytopenia [Recovering/Resolving]
  - Pancytopenia [Recovering/Resolving]
  - Ewing^s sarcoma [Fatal]
  - Product use in unapproved indication [Unknown]
  - Sepsis [Unknown]
  - Cardiac arrest [Fatal]
  - Treatment failure [Unknown]

NARRATIVE: CASE EVENT DATE: 201402
